FAERS Safety Report 10417417 (Version 1)
Quarter: 2014Q3

REPORT INFORMATION
  Report Type: Report from Study
  Country: AU (occurrence: AU)
  Receive Date: 20140829
  Receipt Date: 20140829
  Transmission Date: 20150326
  Serious: Yes (Hospitalization)
  Sender: FDA-Public Use
  Company Number: AU-ROCHE-1455364

PATIENT
  Age: 49 Year
  Sex: Male
  Weight: 89 kg

DRUGS (7)
  1. VELIPARIB [Suspect]
     Active Substance: VELIPARIB
     Indication: RECTAL CANCER
     Route: 048
     Dates: start: 20140708, end: 20140713
  2. CAPECITABINE [Suspect]
     Active Substance: CAPECITABINE
     Indication: RECTAL CANCER
     Route: 048
     Dates: start: 20140707
  3. LOPERAMIDE [Concomitant]
     Active Substance: LOPERAMIDE
     Indication: FREQUENT BOWEL MOVEMENTS
     Dosage: AS REQUIRED
     Route: 065
     Dates: start: 20140721
  4. SERETIDE [Concomitant]
     Active Substance: FLUTICASONE FUROATE\SALMETEROL XINAFOATE
     Indication: ASTHMA
     Dosage: 1 PUFF, AS REQUIRED
     Route: 065
     Dates: start: 1994
  5. VENTOLIN [Concomitant]
     Active Substance: ALBUTEROL SULFATE
     Indication: ASTHMA
     Dosage: 1 PUFF, AS REQUIRED
     Route: 065
     Dates: start: 1984
  6. VELIPARIB [Suspect]
     Active Substance: VELIPARIB
     Route: 048
     Dates: start: 20140714, end: 20140714
  7. VELIPARIB [Suspect]
     Active Substance: VELIPARIB
     Route: 048
     Dates: start: 20140714

REACTIONS (1)
  - Gastroenteritis radiation [Recovered/Resolved]

NARRATIVE: CASE EVENT DATE: 20140806
